FAERS Safety Report 4952992-X (Version None)
Quarter: 2006Q1

REPORT INFORMATION
  Report Type: 
  Country: None (occurrence: None)
  Receive Date: 20060320
  Receipt Date: 20060307
  Transmission Date: 20060701
  Serious: Yes (Other)
  Sender: FDA-Public Use
  Company Number: 2006033859

PATIENT
  Age: 46 Year
  Sex: Male
  Weight: 117.9352 kg

DRUGS (5)
  1. VIAGRA [Suspect]
     Indication: ERECTILE DYSFUNCTION
     Dosage: 50 MG (50 MG AS NECESSARY)
     Dates: start: 20040101, end: 20040101
  2. GLIPIZIDE [Suspect]
     Indication: DIABETES MELLITUS
     Dosage: 5 MG
     Dates: start: 20040101, end: 20040101
  3. ATENOLOL [Concomitant]
  4. HYDROCHLOROTHIAZIDE [Concomitant]
  5. ANTIHYPERTENSIVES (ANTIHYPERTENSIVES ) [Concomitant]

REACTIONS (13)
  - ASTHENIA [None]
  - BLINDNESS TRANSIENT [None]
  - BLOOD GLUCOSE DECREASED [None]
  - CONDITION AGGRAVATED [None]
  - DIABETES MELLITUS [None]
  - DIABETIC BLINDNESS [None]
  - DIZZINESS [None]
  - DRUG INEFFECTIVE [None]
  - MALAISE [None]
  - NAUSEA [None]
  - POLLAKIURIA [None]
  - TREMOR [None]
  - VOMITING [None]
